FAERS Safety Report 19351694 (Version 1)
Quarter: 2021Q2

REPORT INFORMATION
  Report Type: Other
  Country: CA (occurrence: CA)
  Receive Date: 20210531
  Receipt Date: 20210531
  Transmission Date: 20210717
  Serious: Yes (Hospitalization, Other)
  Sender: FDA-Public Use
  Company Number: CA-TOLMAR, INC.-21CA026830

PATIENT
  Age: 56 Year
  Sex: Male

DRUGS (3)
  1. ELIGARD [Suspect]
     Active Substance: LEUPROLIDE ACETATE
     Dosage: 45 MG, Q 6 MONTH
     Route: 058
     Dates: start: 20210504
  2. ELIGARD [Suspect]
     Active Substance: LEUPROLIDE ACETATE
     Indication: PROSTATE CANCER
     Dosage: 45 MG, Q 6 MONTH
     Route: 058
     Dates: start: 20201119
  3. ELIGARD [Suspect]
     Active Substance: LEUPROLIDE ACETATE
     Indication: PROSTATE CANCER
     Dosage: 30 MG, Q 4 MONTH
     Route: 058
     Dates: start: 20200410

REACTIONS (10)
  - Hot flush [Recovered/Resolved]
  - Bladder dysfunction [Recovering/Resolving]
  - Loss of libido [Not Recovered/Not Resolved]
  - Metastases to spine [Recovering/Resolving]
  - Paralysis [Recovering/Resolving]
  - Swelling [Recovering/Resolving]
  - Peripheral swelling [Recovering/Resolving]
  - Spinal compression fracture [Recovering/Resolving]
  - Nerve compression [Recovering/Resolving]
  - Diplegia [Recovering/Resolving]

NARRATIVE: CASE EVENT DATE: 20210119
